FAERS Safety Report 7271756-8 (Version None)
Quarter: 2011Q1

REPORT INFORMATION
  Report Type: 
  Country: None (occurrence: None)
  Receive Date: 20110203
  Receipt Date: 20110126
  Transmission Date: 20110831
  Serious: Yes (Hospitalization, Other)
  Sender: FDA-Public Use
  Company Number: US-ASTELLAS-2010US005093

PATIENT

DRUGS (1)
  1. AMEVIVE [Suspect]
     Indication: PSORIASIS
     Dosage: 15 MG, WEEKLY
     Route: 030
     Dates: start: 20030611, end: 20030902

REACTIONS (2)
  - INTERVERTEBRAL DISC DEGENERATION [None]
  - SQUAMOUS CELL CARCINOMA [None]
